FAERS Safety Report 9340420 (Version 1)
Quarter: 2013Q2

REPORT INFORMATION
  Report Type: Spontaneous
  Country: FR (occurrence: None)
  Receive Date: 20130605
  Receipt Date: 20130605
  Transmission Date: 20140414
  Serious: Yes (Hospitalization)
  Sender: FDA-Public Use
  Company Number: DSM-2013-00515

PATIENT
  Age: 74 Year
  Sex: Male

DRUGS (9)
  1. OLMETEC (OLMESARTAN MEDOXOMIL) [Suspect]
     Indication: HYPERTENSION
     Route: 048
  2. CLOPIDOGREL BIOGARAN [Suspect]
     Indication: PRODUCT USED FOR UNKNOWN INDICATION
  3. TADENAN (PRUNUS AFRICANA) (PRUNUS AFRICANA) [Concomitant]
  4. LODOZ (HYDROCHLORIDE BISOPROLOL FUMARATE) (HYDROCHOROTHIAZIDE, BISOPROLOL FUMARATE) [Concomitant]
  5. KAREDEGIC (ACETYLASALICYLATE LYSINE) (ACETYLASLICYLATE LYSINE)) [Concomitant]
  6. TAHOR (ATORVASTATIN CALCIUM) (ATORVASTATIN CALCIUM) [Concomitant]
  7. OMPERAZOLE (OMEPRAZOLE) (OMEPRAZOLE) [Concomitant]
  8. DOLIPRANE (PARACETAMOL) (PARACETAMOL) [Concomitant]
  9. VOLTAREN (DICLOFENAC) (GEL) (DICLOFENAC) [Concomitant]

REACTIONS (4)
  - Drug interaction [None]
  - Medication error [None]
  - Drug ineffective [None]
  - Hypertension [None]
